FAERS Safety Report 6265816-8 (Version None)
Quarter: 2009Q3

REPORT INFORMATION
  Report Type: 
  Country: None (occurrence: None)
  Receive Date: 20090713
  Receipt Date: 20090702
  Transmission Date: 20100115
  Serious: Yes (Death, Hospitalization, Other)
  Sender: FDA-Public Use
  Company Number: A0796219A

PATIENT
  Age: 73 Year
  Sex: Female
  Weight: 72.8 kg

DRUGS (2)
  1. TYKERB [Suspect]
     Dosage: 250MG FOUR TIMES PER DAY
     Route: 048
     Dates: start: 20080827, end: 20081111
  2. XELODA [Suspect]
     Dosage: 1500MG TWICE PER DAY
     Route: 048
     Dates: start: 20081022, end: 20090211

REACTIONS (7)
  - CARBOHYDRATE ANTIGEN 27.29 INCREASED [None]
  - EJECTION FRACTION ABNORMAL [None]
  - HEPATIC FAILURE [None]
  - HEPATIC LESION [None]
  - MALIGNANT NEOPLASM PROGRESSION [None]
  - METASTASES TO LIVER [None]
  - THROMBOCYTOPENIA [None]
